FAERS Safety Report 8887261 (Version 1)
Quarter: 2012Q4

REPORT INFORMATION
  Report Type: 
  Country: FR (occurrence: FR)
  Receive Date: 20121105
  Receipt Date: 20121105
  Transmission Date: 20130627
  Serious: Yes (Life-Threatening)
  Sender: FDA-Public Use
  Company Number: FR-SANOFI-AVENTIS-2012SA078559

PATIENT
  Age: 81 Year
  Sex: Female

DRUGS (3)
  1. LASILIX [Suspect]
     Indication: DRUG USE FOR UNKNOWN INDICATION
     Route: 048
  2. OMNIPAQUE [Interacting]
     Indication: DRUG USE FOR UNKNOWN INDICATION
     Dosage: 350 mg of I/mL.
     Route: 042
     Dates: start: 20120806, end: 20120806
  3. COAPROVEL [Interacting]
     Indication: DRUG USE FOR UNKNOWN INDICATION
     Route: 048

REACTIONS (2)
  - Renal tubular necrosis [Recovered/Resolved]
  - Renal failure acute [Recovered/Resolved]
